FAERS Safety Report 14586807 (Version 2)
Quarter: 2018Q2

REPORT INFORMATION
  Report Type: Spontaneous
  Country: US (occurrence: US)
  Receive Date: 20180301
  Receipt Date: 20180427
  Transmission Date: 20180711
  Serious: Yes (Other)
  Sender: FDA-Public Use
  Company Number: US-BAYER-2018-040076

PATIENT
  Age: 26 Year
  Sex: Female
  Weight: 82.1 kg

DRUGS (2)
  1. MIRENA [Suspect]
     Active Substance: LEVONORGESTREL
     Indication: CONTRACEPTION
  2. MIRENA [Suspect]
     Active Substance: LEVONORGESTREL
     Indication: CONTRACEPTION
     Dosage: 20 MCG/24HR, CONT
     Route: 015
     Dates: start: 20180220, end: 20180220

REACTIONS (3)
  - Complication of device insertion [None]
  - Device difficult to use [Unknown]
  - Uterine perforation [Recovered/Resolved]

NARRATIVE: CASE EVENT DATE: 20180220
